FAERS Safety Report 17619589 (Version 1)
Quarter: 2020Q2

REPORT INFORMATION
  Report Type: Report from Study
  Country: US (occurrence: US)
  Receive Date: 20200402
  Receipt Date: 20200402
  Transmission Date: 20200713
  Serious: Yes (Hospitalization)
  Sender: FDA-Public Use
  Company Number: US-BIOGEN-2020BI00856327

PATIENT
  Age: 30 Year
  Sex: Female

DRUGS (1)
  1. TECFIDERA [Suspect]
     Active Substance: DIMETHYL FUMARATE
     Indication: MULTIPLE SCLEROSIS
     Route: 048
     Dates: start: 20191018

REACTIONS (3)
  - Weight increased [Recovered/Resolved]
  - Procedural pain [Not Recovered/Not Resolved]
  - Procedural nausea [Not Recovered/Not Resolved]

NARRATIVE: CASE EVENT DATE: 201911
